FAERS Safety Report 5160766-2 (Version None)
Quarter: 2006Q4

REPORT INFORMATION
  Report Type: 
  Country: None (occurrence: None)
  Receive Date: 20060919
  Receipt Date: 20060613
  Transmission Date: 20070319
  Serious: No
  Sender: FDA-Public Use
  Company Number: 2006US001330

PATIENT
  Age: 80 Year
  Sex: Male

DRUGS (9)
  1. VESICARE [Suspect]
     Indication: URINARY INCONTINENCE
     Dosage: 5 MG UID/QD ORAL
     Route: 048
     Dates: start: 20051101, end: 20060314
  2. LASIX [Concomitant]
  3. TOPROL-XL [Concomitant]
  4. CARDIZEM [Concomitant]
  5. CELEBREX [Concomitant]
  6. PLAVIX [Concomitant]
  7. MONOPRIL [Concomitant]
  8. HYTRIN [Concomitant]
  9. PROSCAR [Concomitant]

REACTIONS (1)
  - DIPLOPIA [None]
